FAERS Safety Report 5308387-2 (Version None)
Quarter: 2007Q2

REPORT INFORMATION
  Report Type: 
  Country: None (occurrence: None)
  Receive Date: 20070420
  Receipt Date: 20070407
  Transmission Date: 20071010
  Serious: Yes (Other)
  Sender: FDA-Public Use
  Company Number: 163-21880-07030676

PATIENT
  Age: 66 Year
  Sex: Female

DRUGS (14)
  1. REVLIMID [Suspect]
     Indication: MANTLE CELL LYMPHOMA
     Dosage: SEE IMAGE
     Route: 048
     Dates: start: 20060713, end: 20070122
  2. REVLIMID [Suspect]
     Indication: MANTLE CELL LYMPHOMA
     Dosage: SEE IMAGE
     Route: 048
     Dates: start: 20070301, end: 20070322
  3. RITUXAN [Suspect]
     Indication: MANTLE CELL LYMPHOMA
  4. EFFEXOR XR [Concomitant]
  5. SYNTHROID [Concomitant]
  6. CRESTOR [Concomitant]
  7. LASIX [Concomitant]
  8. REQUIP (ROPINROLE HYDROCHLORIDE) [Concomitant]
  9. STOOL SOFTENER (DOCUSATE SODIUM) [Concomitant]
  10. BETACAROTENE (BETACAROTENE) [Concomitant]
  11. JUICE PLUS (JUICE PLUS) (TABLETS) [Concomitant]
  12. CIPROFLOXACIN [Concomitant]
  13. DEMEROL [Concomitant]
  14. VERSED [Concomitant]

REACTIONS (16)
  - BLOOD CHOLESTEROL INCREASED [None]
  - BLOOD PHOSPHORUS INCREASED [None]
  - BLOOD TRIGLYCERIDES INCREASED [None]
  - DRY EYE [None]
  - HYPERSENSITIVITY [None]
  - INFLUENZA LIKE ILLNESS [None]
  - LIVER FUNCTION TEST ABNORMAL [None]
  - MUSCLE SPASMS [None]
  - NEUTROPENIA [None]
  - NIGHT SWEATS [None]
  - OEDEMA PERIPHERAL [None]
  - PARAESTHESIA [None]
  - PRURITUS [None]
  - RHINORRHOEA [None]
  - SENSORY DISTURBANCE [None]
  - URINARY TRACT INFECTION [None]
